FAERS Safety Report 19578779 (Version 1)
Quarter: 2021Q3

REPORT INFORMATION
  Report Type: Spontaneous
  Country: HU (occurrence: HU)
  Receive Date: 20210719
  Receipt Date: 20210719
  Transmission Date: 20211014
  Serious: Yes (Hospitalization)
  Sender: FDA-Public Use
  Company Number: HU-MYLANLABS-2021M1043123

PATIENT
  Age: 24 Year
  Sex: Male

DRUGS (16)
  1. OLANZAPINE. [Suspect]
     Active Substance: OLANZAPINE
     Indication: SCHIZOPHRENIA
     Route: 065
  2. HALOPERIDOL. [Suspect]
     Active Substance: HALOPERIDOL
     Indication: SUBSTANCE-INDUCED PSYCHOTIC DISORDER
     Route: 065
  3. HALOPERIDOL. [Suspect]
     Active Substance: HALOPERIDOL
     Indication: SCHIZOPHRENIA
  4. VALPROIC ACID. [Concomitant]
     Active Substance: VALPROIC ACID
     Indication: SCHIZOPHRENIA
     Dosage: 900 MILLIGRAM, QD
     Route: 065
     Dates: start: 2020
  5. VALPROIC ACID. [Concomitant]
     Active Substance: VALPROIC ACID
     Dosage: 450 MILLIGRAM, QD
     Route: 065
     Dates: start: 20200615
  6. CLOZAPINE. [Suspect]
     Active Substance: CLOZAPINE
     Dosage: UNK INCREASED DOSE
     Route: 065
  7. CLONAZEPAM. [Suspect]
     Active Substance: CLONAZEPAM
     Indication: SCHIZOPHRENIA
     Dosage: 0.5 MILLIGRAM,THREE TIMES
     Route: 065
     Dates: start: 20200512, end: 20200514
  8. VALPROIC ACID. [Concomitant]
     Active Substance: VALPROIC ACID
     Dosage: UNK
     Route: 048
     Dates: start: 20200514
  9. ZUCLOPENTHIXOL [Concomitant]
     Active Substance: ZUCLOPENTHIXOL
     Indication: SCHIZOPHRENIA
     Dosage: 10 MILLIGRAM,INITIALLY THREE TIMES AND THEN TWO TIMES
     Route: 065
     Dates: start: 2020
  10. CLOZAPINE. [Suspect]
     Active Substance: CLOZAPINE
     Indication: SCHIZOPHRENIA
     Dosage: 175 MILLIGRAM, QD,MONOTHERAPY; INITIAL DOSE NOT STATED
     Route: 065
     Dates: start: 2019
  11. QUETIAPINE. [Suspect]
     Active Substance: QUETIAPINE
     Indication: SUBSTANCE-INDUCED PSYCHOTIC DISORDER
     Route: 065
  12. SODIUM CHLORIDE. [Suspect]
     Active Substance: SODIUM CHLORIDE
     Indication: SCHIZOPHRENIA
     Route: 042
     Dates: start: 20200514
  13. OLANZAPINE. [Suspect]
     Active Substance: OLANZAPINE
     Indication: SUBSTANCE-INDUCED PSYCHOTIC DISORDER
  14. ZUCLOPENTHIXOL [Concomitant]
     Active Substance: ZUCLOPENTHIXOL
     Dosage: 100 MILLIGRAM,LONG ACTING INJECTION TWO TIMES
     Route: 065
     Dates: start: 2020
  15. CLOZAPINE. [Suspect]
     Active Substance: CLOZAPINE
     Dosage: 125 MILLIGRAM
     Route: 065
     Dates: start: 2020
  16. VALPROIC ACID. [Concomitant]
     Active Substance: VALPROIC ACID
     Dosage: 50 MILLIGRAM
     Route: 065
     Dates: start: 20200512

REACTIONS (4)
  - Drug ineffective [Unknown]
  - Drug withdrawal syndrome [Recovered/Resolved]
  - Neuroleptic malignant syndrome [Recovered/Resolved]
  - Malignant catatonia [Recovered/Resolved]

NARRATIVE: CASE EVENT DATE: 20200512
